FAERS Safety Report 7403967-2 (Version None)
Quarter: 2011Q2

REPORT INFORMATION
  Report Type: 
  Country: None (occurrence: None)
  Receive Date: 20110408
  Receipt Date: 20110331
  Transmission Date: 20111010
  Serious: Yes (Death, Hospitalization)
  Sender: FDA-Public Use
  Company Number: JP-AMGEN-KDC432404

PATIENT
  Age: 46 Year
  Sex: Male
  Weight: 66 kg

DRUGS (22)
  1. IRINOTECAN HCL [Concomitant]
     Indication: COLORECTAL CANCER
     Dosage: UNK UNK, Q2WK
     Route: 041
     Dates: start: 20100617
  2. BEVACIZUMAB [Concomitant]
  3. RAMELTEON [Concomitant]
     Route: 048
  4. METHYCOOL [Concomitant]
     Route: 048
  5. PANITUMUMAB [Suspect]
     Indication: COLORECTAL CANCER
     Dosage: 6 MG/KG, Q2WK
     Route: 041
     Dates: start: 20100617, end: 20100722
  6. FLUOROURACIL [Concomitant]
     Route: 041
     Dates: start: 20100617, end: 20100722
  7. DAIKENTYUTO [Concomitant]
     Route: 048
  8. MINOMYCIN [Concomitant]
     Dosage: UNK UNK, UNK
     Route: 048
  9. CALCIUM LEVOFOLINATE [Concomitant]
     Indication: COLORECTAL CANCER
     Dosage: UNK UNK, Q2WK
     Route: 041
     Dates: start: 20100617
  10. ANTIHISTAMINES [Concomitant]
     Indication: PROPHYLAXIS
     Route: 065
  11. RAMELTEON [Concomitant]
     Route: 042
  12. REBAMIPIDE [Concomitant]
     Route: 048
  13. IRINOTECAN HCL [Concomitant]
     Route: 041
     Dates: start: 20100617, end: 20100722
  14. FLUOROURACIL [Concomitant]
     Indication: COLORECTAL CANCER
     Dosage: UNK UNK, Q2WK
     Route: 040
     Dates: start: 20100617
  15. CALCIUM LEVOFOLINATE [Concomitant]
     Route: 041
     Dates: start: 20100617, end: 20100722
  16. EMEND [Concomitant]
     Route: 048
  17. LANSOPRAZOLE [Concomitant]
     Route: 048
  18. DECADRON [Concomitant]
     Route: 042
  19. FLUOROURACIL [Concomitant]
     Dosage: UNK UNK, Q2WK
     Route: 041
     Dates: start: 20100617
  20. FLUOROURACIL [Concomitant]
     Route: 040
     Dates: start: 20100617, end: 20100722
  21. POLARAMINE [Concomitant]
     Route: 042
  22. CORTICOSTEROIDS [Concomitant]
     Indication: PROPHYLAXIS
     Route: 065

REACTIONS (4)
  - WHITE BLOOD CELL COUNT DECREASED [None]
  - DEATH [None]
  - HAEMATOCHEZIA [None]
  - JAUNDICE [None]
